FAERS Safety Report 23492831 (Version 1)
Quarter: 2024Q1

REPORT INFORMATION
  Report Type: Spontaneous
  Country: BR (occurrence: BR)
  Receive Date: 20240207
  Receipt Date: 20240207
  Transmission Date: 20240409
  Serious: Yes (Other)
  Sender: FDA-Public Use
  Company Number: BR-Accord-405378

PATIENT
  Age: 45 Year
  Sex: Female
  Weight: 62.9 kg

DRUGS (11)
  1. CARBOPLATIN [Suspect]
     Active Substance: CARBOPLATIN
     Indication: Cervix carcinoma
     Route: 042
     Dates: start: 20240125
  2. PACLITAXEL [Concomitant]
     Active Substance: PACLITAXEL
     Indication: Chemotherapy
     Route: 042
     Dates: start: 20240125
  3. DEXCHLORPHENIRAMINE MALEATE [Concomitant]
     Active Substance: DEXCHLORPHENIRAMINE MALEATE
     Indication: Chemotherapy side effect prophylaxis
     Dates: start: 20240125
  4. SODIUM CHLORIDE [Concomitant]
     Active Substance: SODIUM CHLORIDE
     Indication: Chemotherapy side effect prophylaxis
     Dosage: 0.9%
     Dates: start: 20240125
  5. CIMETIDINE [Concomitant]
     Active Substance: CIMETIDINE
     Indication: Chemotherapy side effect prophylaxis
     Dates: start: 20240125
  6. DEXAMETHASONE [Concomitant]
     Active Substance: DEXAMETHASONE
     Indication: Chemotherapy side effect prophylaxis
     Dates: start: 20240125
  7. MORPHINE [Concomitant]
     Active Substance: MORPHINE
     Dosage: 1 TABLET EVERY 8 HOURS
  8. ALBUTEROL [Concomitant]
     Active Substance: ALBUTEROL
  9. BUDESONIDE\FORMOTEROL [Concomitant]
     Active Substance: BUDESONIDE\FORMOTEROL
     Dosage: 1 TABLET DAILY
  10. PREDNISONE [Concomitant]
     Active Substance: PREDNISONE
     Dosage: IN MORNING
     Dates: start: 20231225
  11. FUROSEMIDE [Concomitant]
     Active Substance: FUROSEMIDE
     Dosage: 1 TABLET DAILY
     Dates: start: 20240118

REACTIONS (2)
  - Dyspnoea [Recovered/Resolved]
  - Hypoxia [Recovered/Resolved]

NARRATIVE: CASE EVENT DATE: 20240125
